FAERS Safety Report 25370840 (Version 1)
Quarter: 2025Q2

REPORT INFORMATION
  Report Type: Spontaneous
  Country: BG (occurrence: BG)
  Receive Date: 20250528
  Receipt Date: 20250528
  Transmission Date: 20250716
  Serious: Yes (Hospitalization, Other)
  Sender: BRISTOL-MYERS SQUIBB COMPANY
  Company Number: BG-BRISTOL-MYERS SQUIBB COMPANY-2025-074016

PATIENT
  Age: 73 Year
  Sex: Female

DRUGS (4)
  1. APIXABAN [Suspect]
     Active Substance: APIXABAN
     Indication: Atrial fibrillation
     Dates: end: 2020
  2. ASPIRIN ACTAVIS [Concomitant]
     Indication: Product used for unknown indication
  3. MICARDIS [Concomitant]
     Active Substance: TELMISARTAN
     Indication: Product used for unknown indication
  4. PROPAFENONE [Concomitant]
     Active Substance: PROPAFENONE
     Indication: Product used for unknown indication

REACTIONS (12)
  - Blood pressure increased [Unknown]
  - Atrial fibrillation [Recovered/Resolved]
  - Arrhythmia [Recovered/Resolved]
  - Dyspnoea [Unknown]
  - Asthenia [Unknown]
  - Palpitations [Unknown]
  - Extrasystoles [Unknown]
  - Chest pain [Unknown]
  - Coronary artery stenosis [Unknown]
  - Cardiac disorder [Recovered/Resolved]
  - Angina pectoris [Unknown]
  - COVID-19 [Unknown]

NARRATIVE: CASE EVENT DATE: 20180101
